FAERS Safety Report 7066934-7 (Version None)
Quarter: 2010Q4

REPORT INFORMATION
  Report Type: 
  Country: None (occurrence: None)
  Receive Date: 20101028
  Receipt Date: 20101014
  Transmission Date: 20110411
  Serious: No
  Sender: FDA-Public Use
  Company Number: US-BIOGENIDEC-2010BI011922

PATIENT
  Sex: Female

DRUGS (1)
  1. TYSABRI [Suspect]
     Indication: MULTIPLE SCLEROSIS
     Route: 042
     Dates: start: 20091015

REACTIONS (12)
  - COUGH [None]
  - DECREASED ACTIVITY [None]
  - FLUSHING [None]
  - MEMORY IMPAIRMENT [None]
  - NASAL CONGESTION [None]
  - POOR VENOUS ACCESS [None]
  - SNEEZING [None]
  - URINARY INCONTINENCE [None]
  - URINARY RETENTION [None]
  - URINARY TRACT INFECTION [None]
  - WEIGHT INCREASED [None]
  - WEIGHT LOSS POOR [None]
